FAERS Safety Report 15567079 (Version 1)
Quarter: 2018Q4

REPORT INFORMATION
  Report Type: Spontaneous
  Country: DE (occurrence: DE)
  Receive Date: 20181030
  Receipt Date: 20181030
  Transmission Date: 20190205
  Serious: Yes (Other)
  Sender: FDA-Public Use
  Company Number: PHHY2018DE125110

PATIENT
  Sex: Male

DRUGS (1)
  1. ESTRADIOL. [Suspect]
     Active Substance: ESTRADIOL
     Indication: PRODUCT USED FOR UNKNOWN INDICATION
     Dosage: 1.5 MG ONCE DAILY OR 2 PUFFS DAILY. (UNKNOWN,1 IN 1 D)
     Route: 062

REACTIONS (1)
  - Fibrocystic breast disease [Unknown]
